FAERS Safety Report 9390420 (Version 4)
Quarter: 2013Q3

REPORT INFORMATION
  Report Type: Report from Study
  Country: DK (occurrence: DK)
  Receive Date: 20130709
  Receipt Date: 20130906
  Transmission Date: 20140515
  Serious: Yes (Death, Other)
  Sender: FDA-Public Use
  Company Number: PHHY2013DK071033

PATIENT
  Age: 64 Year
  Sex: Male
  Weight: 78 kg

DRUGS (3)
  1. SANDOSTATIN LAR [Suspect]
     Indication: PANCREATIC NEUROENDOCRINE TUMOUR
     Dosage: 30 MG, UNK
     Dates: end: 20130222
  2. CONTALGIN [Concomitant]
     Dosage: 20 MG, BID
     Dates: start: 20130124, end: 20130527
  3. DUROGESIC [Concomitant]
     Dosage: 50 MG, EVERY THIRD DAY
     Dates: start: 20130627

REACTIONS (12)
  - Malignant neoplasm progression [Fatal]
  - Asthenia [Fatal]
  - Brain oedema [Unknown]
  - Fatigue [Not Recovered/Not Resolved]
  - Pain [Unknown]
  - Peripheral coldness [Unknown]
  - Nausea [Not Recovered/Not Resolved]
  - Chest pain [Not Recovered/Not Resolved]
  - Weight decreased [Not Recovered/Not Resolved]
  - Diarrhoea [Not Recovered/Not Resolved]
  - Abdominal pain [Not Recovered/Not Resolved]
  - Flushing [Not Recovered/Not Resolved]
